FAERS Safety Report 19222440 (Version 2)
Quarter: 2021Q3

REPORT INFORMATION
  Report Type: Spontaneous
  Country: CO (occurrence: CO)
  Receive Date: 20210506
  Receipt Date: 20210708
  Transmission Date: 20211014
  Serious: Yes (Other)
  Sender: FDA-Public Use
  Company Number: CO-PFIZER INC-2021454335

PATIENT
  Age: 48 Year
  Sex: Female

DRUGS (1)
  1. REAMPLA [Suspect]
     Active Substance: PALBOCICLIB
     Indication: BREAST CANCER METASTATIC
     Dosage: 125 MG, CYCLIC (1 DAILY FOR 21 DAYS AND REST 1 WEEK)
     Route: 048
     Dates: start: 2021

REACTIONS (19)
  - Memory impairment [Unknown]
  - Crying [Unknown]
  - Pain in extremity [Unknown]
  - Abnormal faeces [Unknown]
  - Dyschezia [Unknown]
  - Exercise lack of [Unknown]
  - Vulvovaginal pain [Unknown]
  - Dyspnoea [Unknown]
  - Feeling abnormal [Unknown]
  - Stress [Unknown]
  - Malaise [Not Recovered/Not Resolved]
  - Gastrointestinal disorder [Not Recovered/Not Resolved]
  - Visual impairment [Unknown]
  - Breast haemorrhage [Unknown]
  - Pain [Not Recovered/Not Resolved]
  - Neoplasm progression [Unknown]
  - Breast pain [Unknown]
  - Proctalgia [Unknown]
  - Back pain [Not Recovered/Not Resolved]

NARRATIVE: CASE EVENT DATE: 2021
